FAERS Safety Report 6332969-2 (Version None)
Quarter: 2009Q3

REPORT INFORMATION
  Report Type: 
  Country: None (occurrence: None)
  Receive Date: 20090828
  Receipt Date: 20090819
  Transmission Date: 20100115
  Serious: Yes (Hospitalization)
  Sender: FDA-Public Use
  Company Number: PHHY2009SA35211

PATIENT
  Age: 65 Year
  Sex: Female

DRUGS (4)
  1. EXJADE [Suspect]
     Indication: MYELOFIBROSIS
     Dosage: 20 MG/KG DAILY
     Route: 048
     Dates: start: 20080801
  2. APREX [Concomitant]
     Dosage: UNK
  3. CALCIUM [Concomitant]
  4. HYDROXYUREA [Concomitant]

REACTIONS (3)
  - INFLUENZA [None]
  - PANCREATITIS [None]
  - RENAL FAILURE ACUTE [None]
